FAERS Safety Report 12776437 (Version 1)
Quarter: 2016Q3

REPORT INFORMATION
  Report Type: Report from Study
  Country: DE (occurrence: DE)
  Receive Date: 20160923
  Receipt Date: 20160923
  Transmission Date: 20161109
  Serious: Yes (Hospitalization)
  Sender: FDA-Public Use
  Company Number: US-ASTRAZENECA-2016SF01596

PATIENT
  Sex: Male

DRUGS (8)
  1. SYNAGIS [Suspect]
     Active Substance: PALIVIZUMAB
     Indication: PREMATURE BABY
     Dosage: 100.0MG UNKNOWN
     Route: 030
     Dates: start: 20080926, end: 20080926
  2. SYNAGIS [Suspect]
     Active Substance: PALIVIZUMAB
     Indication: PREMATURE BABY
     Dosage: 95.0MG UNKNOWN
     Route: 030
     Dates: start: 20081229, end: 20081229
  3. SYNAGIS [Suspect]
     Active Substance: PALIVIZUMAB
     Indication: PREMATURE BABY
     Dosage: 95.0MG UNKNOWN
     Route: 030
     Dates: start: 20081030, end: 20081030
  4. SYNAGIS [Suspect]
     Active Substance: PALIVIZUMAB
     Indication: ANTIVIRAL PROPHYLAXIS
     Dosage: 95.0MG UNKNOWN
     Route: 030
     Dates: start: 20081127, end: 20081127
  5. SYNAGIS [Suspect]
     Active Substance: PALIVIZUMAB
     Indication: PREMATURE BABY
     Dosage: 95.0MG UNKNOWN
     Route: 030
     Dates: start: 20081127, end: 20081127
  6. SYNAGIS [Suspect]
     Active Substance: PALIVIZUMAB
     Indication: ANTIVIRAL PROPHYLAXIS
     Dosage: 95.0MG UNKNOWN
     Route: 030
     Dates: start: 20081229, end: 20081229
  7. SYNAGIS [Suspect]
     Active Substance: PALIVIZUMAB
     Indication: ANTIVIRAL PROPHYLAXIS
     Dosage: 95.0MG UNKNOWN
     Route: 030
     Dates: start: 20081030, end: 20081030
  8. SYNAGIS [Suspect]
     Active Substance: PALIVIZUMAB
     Indication: ANTIVIRAL PROPHYLAXIS
     Dosage: 100.0MG UNKNOWN
     Route: 030
     Dates: start: 20080926, end: 20080926

REACTIONS (1)
  - Renal disorder [Unknown]
